FAERS Safety Report 11386159 (Version 1)
Quarter: 2015Q3

REPORT INFORMATION
  Report Type: Spontaneous
  Country: GB (occurrence: GB)
  Receive Date: 20150817
  Receipt Date: 20150817
  Transmission Date: 20151125
  Serious: Yes (Other)
  Sender: FDA-Public Use
  Company Number: GB-TEVA-585185ACC

PATIENT
  Age: 59 Year
  Sex: Male
  Weight: 76 kg

DRUGS (10)
  1. ERYTHROMYCIN. [Concomitant]
     Active Substance: ERYTHROMYCIN
     Dosage: 4 DOSAGE FORMS DAILY;
     Dates: start: 20150730
  2. ZEROCREAM [Concomitant]
     Dosage: APPLY AS NEEDED.
     Dates: start: 20150123
  3. TESTOSTERONE. [Concomitant]
     Active Substance: TESTOSTERONE
     Dosage: .5 DOSAGE FORMS DAILY; 0.5 DOSAGE FORM, APPLY HALF SACHET DAILY AS DIRECTED BY SPECIALIST.
     Dates: start: 20141216
  4. SILDENAFIL. [Concomitant]
     Active Substance: SILDENAFIL
     Dosage: BY ENDOCRINOLOGIST.
     Dates: start: 20120803
  5. FUROSEMIDE. [Concomitant]
     Active Substance: FUROSEMIDE
     Dosage: 1 DOSAGE FORMS DAILY;
     Dates: start: 20150625
  6. AMOXICILLIN. [Suspect]
     Active Substance: AMOXICILLIN
     Dates: start: 20150730
  7. ENALAPRIL [Concomitant]
     Active Substance: ENALAPRIL
     Dosage: 1 DOSAGE FORMS DAILY;
     Dates: start: 20150625
  8. MYCOPHENOLATE MOFETIL. [Concomitant]
     Active Substance: MYCOPHENOLATE MOFETIL
     Dosage: 4 DOSAGE FORMS DAILY;
     Dates: start: 20130501
  9. PREDNISOLONE. [Concomitant]
     Active Substance: PREDNISOLONE
     Dosage: 2 DOSAGE FORMS DAILY; 2 DOSAGE FORMS, AS PRESCRIBED BY SPECIALIST.
     Dates: start: 20150619
  10. PROGRAF [Concomitant]
     Active Substance: TACROLIMUS\TACROLIMUS ANHYDROUS
     Dosage: 1 DOSAGE FORMS DAILY;
     Dates: start: 20141216, end: 20150625

REACTIONS (3)
  - Drug hypersensitivity [Recovering/Resolving]
  - Malaise [Recovering/Resolving]
  - Rash generalised [Recovering/Resolving]

NARRATIVE: CASE EVENT DATE: 20150730
